FAERS Safety Report 6403922-5 (Version None)
Quarter: 2009Q4

REPORT INFORMATION
  Report Type: 
  Country: None (occurrence: None)
  Receive Date: 20091016
  Receipt Date: 20091008
  Transmission Date: 20100525
  Serious: Yes (Hospitalization)
  Sender: FDA-Public Use
  Company Number: SE-ABBOTT-09P-150-0601325-00

PATIENT
  Age: 65 Year
  Sex: Female

DRUGS (1)
  1. HUMIRA [Suspect]
     Indication: RHEUMATOID ARTHRITIS
     Route: 058
     Dates: start: 20080114, end: 20090129

REACTIONS (5)
  - ANAEMIA [None]
  - HEPATIC ENZYME INCREASED [None]
  - PNEUMONIA [None]
  - TRANSAMINASES INCREASED [None]
  - TROPONIN INCREASED [None]
